FAERS Safety Report 19683925 (Version 1)
Quarter: 2021Q3

REPORT INFORMATION
  Report Type: Spontaneous
  Country: GB (occurrence: GB)
  Receive Date: 20210811
  Receipt Date: 20210811
  Transmission Date: 20211014
  Serious: Yes (Disabling, Other)
  Sender: FDA-Public Use
  Company Number: GB-AUROBINDO-AUR-APL-2021-034219

PATIENT
  Age: 63 Year
  Sex: Female
  Weight: 68 kg

DRUGS (16)
  1. PARACETAMOL [Concomitant]
     Active Substance: ACETAMINOPHEN
     Indication: ILL-DEFINED DISORDER
     Dosage: UNK UNK, FOUR TIMES/DAY (TAKE  TWO TABLETS)
     Route: 065
     Dates: start: 20210628, end: 20210710
  2. HYDROXOCOBALAMIN [Concomitant]
     Active Substance: HYDROXOCOBALAMIN
     Indication: ILL-DEFINED DISORDER
     Dosage: UNK (USE AS DIRECTED)
     Route: 065
     Dates: start: 20210726, end: 20210727
  3. AMLODIPINE [Concomitant]
     Active Substance: AMLODIPINE BESYLATE
     Indication: ILL-DEFINED DISORDER
     Dosage: UNK (TAKE ONE DAILY)
     Route: 065
     Dates: start: 20210609, end: 20210707
  4. CLOTRIMAZOLE. [Concomitant]
     Active Substance: CLOTRIMAZOLE
     Indication: ILL-DEFINED DISORDER
     Dosage: UNK (APPLY TO THE AFFECTED AREA(S) TWICE DAILY)
     Route: 065
     Dates: start: 20210327
  5. PROCHLORPERAZINE. [Concomitant]
     Active Substance: PROCHLORPERAZINE
     Indication: ILL-DEFINED DISORDER
     Dosage: UNK (TAKE ONE TABLET THREE TIMES DAILY)
     Route: 065
     Dates: start: 20210429
  6. BISOPROLOL [Concomitant]
     Active Substance: BISOPROLOL
     Indication: ILL-DEFINED DISORDER
     Dosage: UNK (TAKE ONE DAILY)
     Route: 065
     Dates: start: 20210429
  7. ACIDEX [Concomitant]
     Indication: ILL-DEFINED DISORDER
     Dosage: UNK (2X5ML SPOON 4 TIMES/DAY WHEN REQUIRED)
     Route: 065
     Dates: start: 20210408
  8. YALTORMIN SR [Concomitant]
     Indication: PRODUCT USED FOR UNKNOWN INDICATION
     Dosage: UNK (TAKE ONE TABLET TWICE A DAY (GENERIC NAME: MET...)
     Route: 065
     Dates: start: 20210429
  9. LANSOPRAZOLE. [Concomitant]
     Active Substance: LANSOPRAZOLE
     Indication: ILL-DEFINED DISORDER
     Dosage: UNK (TAKE ONE OR TWO ONCE DAILY)
     Route: 065
     Dates: start: 20210429
  10. AQUEOUS [Concomitant]
     Indication: ILL-DEFINED DISORDER
     Dosage: UNK (ASD)
     Route: 065
     Dates: start: 20210408
  11. BECLOMETASONE [Concomitant]
     Active Substance: BECLOMETHASONE DIPROPIONATE
     Indication: ILL-DEFINED DISORDER
     Dosage: UNK (TWO PUFFS TWICE DAILY)
     Route: 065
     Dates: start: 20210628
  12. DOXAZOSIN [Concomitant]
     Active Substance: DOXAZOSIN MESYLATE
     Indication: ILL-DEFINED DISORDER
     Dosage: UNK (TAKE ONE INE THE MORNING AND TWO AT NIGHT)
     Route: 065
     Dates: start: 20210429
  13. AMLODIPINE [Suspect]
     Active Substance: AMLODIPINE BESYLATE
     Indication: PRODUCT USED FOR UNKNOWN INDICATION
     Dosage: 5 MILLIGRAM
     Route: 065
     Dates: start: 20210729
  14. CINNARIZINE [Concomitant]
     Active Substance: CINNARIZINE
     Indication: ILL-DEFINED DISORDER
     Dosage: UNK (TAKE ONE TABLET THREE TIMES DAILY)
     Route: 065
     Dates: start: 20210429
  15. CLOPIDOGREL [Concomitant]
     Active Substance: CLOPIDOGREL BISULFATE
     Indication: ILL-DEFINED DISORDER
     Dosage: UNK (TAKE ONE ONCE DAILY)
     Route: 065
     Dates: start: 20210429
  16. MAGNESIUM ASPARTATE [Concomitant]
     Active Substance: MAGNESIUM ASPARTATE
     Indication: ILL-DEFINED DISORDER
     Dosage: UNK UNK, TWO TIMES A DAY
     Route: 065
     Dates: start: 20210712

REACTIONS (1)
  - Joint swelling [Not Recovered/Not Resolved]

NARRATIVE: CASE EVENT DATE: 20210729
